FAERS Safety Report 16777539 (Version 1)
Quarter: 2019Q3

REPORT INFORMATION
  Report Type: Spontaneous
  Country: US (occurrence: US)
  Receive Date: 20190905
  Receipt Date: 20190905
  Transmission Date: 20191005
  Serious: Yes (Hospitalization, Other)
  Sender: FDA-Public Use
  Company Number: US-UCBSA-2019036777

PATIENT
  Age: 56 Year
  Sex: Male
  Weight: 90 kg

DRUGS (5)
  1. DUOPA [Interacting]
     Active Substance: CARBIDOPA\LEVODOPA
     Dosage: EXTRA DOSE GIVEN; ROUTE: JEJUNAL
     Dates: start: 20190601, end: 20190601
  2. NEURONTIN [Concomitant]
     Active Substance: GABAPENTIN
     Indication: PRODUCT USED FOR UNKNOWN INDICATION
     Dosage: UNK
     Dates: start: 20190715
  3. NEUPRO [Suspect]
     Active Substance: ROTIGOTINE
     Indication: PRODUCT USED FOR UNKNOWN INDICATION
     Dosage: 8 MILLIGRAM, ONCE DAILY (QD)
     Route: 062
     Dates: start: 20190506, end: 20190715
  4. DUOPA [Interacting]
     Active Substance: CARBIDOPA\LEVODOPA
     Indication: PARKINSON^S DISEASE
     Dosage: ROUTE: JEJUNAL
     Dates: start: 20190227, end: 2019
  5. DUOPA [Interacting]
     Active Substance: CARBIDOPA\LEVODOPA
     Dosage: ; ROUTE: JEJUNALINCREASE OF MORNING DOSE
     Dates: start: 2019, end: 2019

REACTIONS (9)
  - Pneumonia [Recovered/Resolved]
  - Bradykinesia [Recovered/Resolved]
  - Drug interaction [Unknown]
  - Stoma site discharge [Recovered/Resolved]
  - Impulse-control disorder [Unknown]
  - Muscle rigidity [Recovered/Resolved]
  - On and off phenomenon [Recovered/Resolved]
  - Gait disturbance [Unknown]
  - Fatigue [Not Recovered/Not Resolved]

NARRATIVE: CASE EVENT DATE: 20190601
